FAERS Safety Report 13103697 (Version 1)
Quarter: 2017Q1

REPORT INFORMATION
  Report Type: Report from Study
  Country: US (occurrence: US)
  Receive Date: 20170111
  Receipt Date: 20170111
  Transmission Date: 20170428
  Serious: Yes (Other)
  Sender: FDA-Public Use
  Company Number: US-AMGEN-USASL2017002280

PATIENT
  Age: 61 Year
  Sex: Female

DRUGS (1)
  1. REPATHA [Suspect]
     Active Substance: EVOLOCUMAB
     Indication: BLOOD CHOLESTEROL INCREASED
     Dosage: UNK, Q2WK
     Route: 065

REACTIONS (6)
  - Weight decreased [Unknown]
  - Blood glucose decreased [Unknown]
  - Spinal fracture [Unknown]
  - Fall [Unknown]
  - Loss of consciousness [Unknown]
  - Pelvic fracture [Unknown]

NARRATIVE: CASE EVENT DATE: 201608
